FAERS Safety Report 8233772-9 (Version None)
Quarter: 2012Q1

REPORT INFORMATION
  Report Type: 
  Country: None (occurrence: None)
  Receive Date: 20120326
  Receipt Date: 20120315
  Transmission Date: 20120608
  Serious: Yes (Other)
  Sender: FDA-Public Use
  Company Number: US-JNJFOC-20120307847

PATIENT
  Sex: Female
  Weight: 88.45 kg

DRUGS (3)
  1. AZATHIOPRINE [Suspect]
     Indication: PSORIATIC ARTHROPATHY
     Route: 065
     Dates: start: 20120201, end: 20120201
  2. PREDNISONE TAB [Concomitant]
     Indication: PSORIATIC ARTHROPATHY
     Route: 048
     Dates: start: 19960101
  3. REMICADE [Suspect]
     Indication: PSORIATIC ARTHROPATHY
     Route: 042
     Dates: start: 20110501

REACTIONS (5)
  - FEELING HOT [None]
  - FEELING ABNORMAL [None]
  - INFUSION RELATED REACTION [None]
  - PALPITATIONS [None]
  - ADVERSE EVENT [None]
